FAERS Safety Report 8795293 (Version 4)
Quarter: 2013Q3

REPORT INFORMATION
  Report Type: Report from Study
  Country: JP (occurrence: JP)
  Receive Date: 20120917
  Receipt Date: 20130816
  Transmission Date: 20140515
  Serious: Yes (Hospitalization, Other)
  Sender: FDA-Public Use
  Company Number: JP-VERTEX PHARMACEUTICAL INC.-AE-2012-011183

PATIENT
  Age: 66 Year
  Sex: Male

DRUGS (9)
  1. VX-950 (TELAPREVIR) [Suspect]
     Indication: CHRONIC HEPATITIS C
     Dosage: 2250 MG, QD
     Route: 048
     Dates: start: 20120608, end: 20120830
  2. REBETOL [Suspect]
     Indication: CHRONIC HEPATITIS C
     Dosage: 600 MG, QD
     Route: 048
     Dates: start: 20120607, end: 20120906
  3. REBETOL [Suspect]
     Dosage: 400 MG, QD
     Route: 048
     Dates: start: 20120907, end: 20120913
  4. PEGINTERFERON ALFA-2B [Concomitant]
     Indication: HEPATITIS C
     Dosage: 1.0 ?G/KG, QW
     Route: 058
     Dates: start: 20120607, end: 20120614
  5. PEGINTERFERON ALFA-2B [Concomitant]
     Dosage: 1.5 ?G/KG, QW
     Route: 058
     Dates: start: 20120621, end: 20120921
  6. NAUZELIN [Concomitant]
     Dosage: 30 MG, QD
     Route: 048
     Dates: start: 20120610, end: 20120907
  7. OMEPRAZOLE [Concomitant]
     Dosage: 40 MG, QD
     Route: 042
     Dates: start: 20120611, end: 20120615
  8. FERO-GRADUMET [Concomitant]
     Dosage: 105 MG, QD
     Route: 048
     Dates: start: 20120615, end: 20121004
  9. RABEPRAZOLE [Concomitant]
     Dosage: 10 MG, QD
     Route: 048
     Dates: start: 20120616, end: 20120920

REACTIONS (3)
  - Mallory-Weiss syndrome [Recovered/Resolved]
  - Iron deficiency anaemia [Recovered/Resolved]
  - Anaemia [Recovered/Resolved]
